FAERS Safety Report 5878343-4 (Version None)
Quarter: 2008Q3

REPORT INFORMATION
  Report Type: 
  Country: None (occurrence: None)
  Receive Date: 20080911
  Receipt Date: 20080830
  Transmission Date: 20090109
  Serious: Yes (Hospitalization, Other)
  Sender: FDA-Public Use
  Company Number: US-PFIZER INC-2007098762

PATIENT
  Sex: Male
  Weight: 72 kg

DRUGS (17)
  1. CHANTIX [Suspect]
     Indication: SMOKING CESSATION THERAPY
     Route: 048
     Dates: start: 20070101, end: 20080501
  2. CYCLOBENZAPRINE HCL [Concomitant]
  3. HYDROCODONE BITARTRATE [Concomitant]
  4. LIPITOR [Concomitant]
     Indication: BLOOD CHOLESTEROL INCREASED
  5. NAPROXEN [Concomitant]
  6. GABAPENTIN [Concomitant]
  7. OMEPRAZOLE [Concomitant]
     Indication: GASTROOESOPHAGEAL REFLUX DISEASE
  8. SPIRIVA [Concomitant]
  9. CARBAMAZEPINE [Concomitant]
  10. KETOROLAC TROMETHAMINE [Concomitant]
  11. CALCIUM [Concomitant]
  12. IBUPROFEN [Concomitant]
  13. PRAZOSIN HCL [Concomitant]
  14. TRAZODONE HCL [Concomitant]
  15. HYDROXYCHLOROQUINE [Concomitant]
  16. ASCORBIC ACID [Concomitant]
  17. VITAMIN E [Concomitant]

REACTIONS (11)
  - DRUG INEFFECTIVE [None]
  - DYSGEUSIA [None]
  - FALL [None]
  - FEELING ABNORMAL [None]
  - FLATULENCE [None]
  - HEADACHE [None]
  - INCORRECT DOSE ADMINISTERED [None]
  - INSOMNIA [None]
  - JOINT SWELLING [None]
  - KNEE OPERATION [None]
  - OEDEMA PERIPHERAL [None]
